FAERS Safety Report 9476829 (Version 1)
Quarter: 2013Q3

REPORT INFORMATION
  Report Type: Spontaneous
  Country: US (occurrence: US)
  Receive Date: 20130826
  Receipt Date: 20130826
  Transmission Date: 20140515
  Serious: No
  Sender: FDA-Public Use
  Company Number: US-TARO-2012P1051124

PATIENT
  Age: 69 Year
  Sex: Female
  Weight: 97.52 kg

DRUGS (9)
  1. CLOBETASOL PROPIONATE [Suspect]
     Indication: HYPERSENSITIVITY
     Route: 061
     Dates: start: 20120718, end: 20120723
  2. VITAMIN C [Concomitant]
  3. CALTRATE [Concomitant]
  4. VITAMIN D [Concomitant]
  5. ESTRADIOL [Concomitant]
  6. ASPIRIN [Concomitant]
  7. LISINOPRIL [Concomitant]
  8. SIMVASTATIN [Concomitant]
  9. NIACIN [Concomitant]

REACTIONS (1)
  - Drug ineffective [Not Recovered/Not Resolved]
